FAERS Safety Report 4277025-2 (Version None)
Quarter: 2004Q1

REPORT INFORMATION
  Report Type: 
  Country: None (occurrence: None)
  Receive Date: 20040120
  Receipt Date: 20040105
  Transmission Date: 20041129
  Serious: Yes (Other)
  Sender: FDA-Public Use
  Company Number: HQWYE034405JAN04

PATIENT
  Sex: Female

DRUGS (1)
  1. BISOPROLOL (BISOPROLOL, TABLET) [Suspect]
     Dosage: ORAL
     Route: 048
     Dates: start: 20031101

REACTIONS (6)
  - ARRHYTHMIA [None]
  - BLOOD GLUCOSE INCREASED [None]
  - DRY MOUTH [None]
  - GENERAL PHYSICAL CONDITION ABNORMAL [None]
  - HEART RATE IRREGULAR [None]
  - THIRST [None]
